FAERS Safety Report 24993637 (Version 1)
Quarter: 2025Q1

REPORT INFORMATION
  Report Type: Spontaneous
  Country: US (occurrence: US)
  Receive Date: 20250221
  Receipt Date: 20250221
  Transmission Date: 20250408
  Serious: No
  Sender: Harrow Health
  Company Number: US-IMP-2025000110

PATIENT
  Sex: Female

DRUGS (1)
  1. VEVYE [Suspect]
     Active Substance: CYCLOSPORINE
     Indication: Dry eye
     Route: 047

REACTIONS (3)
  - Lacrimation increased [Recovered/Resolved]
  - Eye discharge [Recovered/Resolved]
  - Dry eye [Unknown]
